FAERS Safety Report 21259756 (Version 1)
Quarter: 2022Q3

REPORT INFORMATION
  Report Type: Spontaneous
  Country: BR (occurrence: BR)
  Receive Date: 20220826
  Receipt Date: 20220826
  Transmission Date: 20221027
  Serious: Yes (Death, Other)
  Sender: FDA-Public Use
  Company Number: BR-EMERGENT BIOSOLUTIONS,-22000167

PATIENT
  Age: 75 Year
  Sex: Female

DRUGS (1)
  1. BAT [Suspect]
     Active Substance: EQUINE BOTULINUM NEUROTOXIN A/B/C/D/E/F/G IMMUNE FAB2
     Indication: Botulism
     Dosage: UNK

REACTIONS (11)
  - General physical health deterioration [Fatal]
  - Shock [Fatal]
  - Acute abdomen [Fatal]
  - Pulseless electrical activity [Not Recovered/Not Resolved]
  - Autonomic nervous system imbalance [Not Recovered/Not Resolved]
  - Central nervous system lesion [Not Recovered/Not Resolved]
  - Abdominal distension [None]
  - Bradycardia [Not Recovered/Not Resolved]
  - Blood pressure fluctuation [Not Recovered/Not Resolved]
  - Heart rate irregular [Not Recovered/Not Resolved]
  - Constipation [Recovered/Resolved]
